FAERS Safety Report 7754041-7 (Version None)
Quarter: 2011Q3

REPORT INFORMATION
  Report Type: 
  Country: None (occurrence: None)
  Receive Date: 20110915
  Receipt Date: 20110912
  Transmission Date: 20111222
  Serious: Yes (Life-Threatening)
  Sender: FDA-Public Use
  Company Number: FR-ABBOTT-11P-056-0853802-00

PATIENT
  Age: 65 Year
  Sex: Male

DRUGS (3)
  1. FUCITHALMIC [Concomitant]
     Indication: PRODUCT USED FOR UNKNOWN INDICATION
  2. LOVENOX [Concomitant]
     Indication: PRODUCT USED FOR UNKNOWN INDICATION
  3. DEPAKENE [Suspect]
     Indication: EPILEPSY
     Route: 048

REACTIONS (5)
  - PNEUMONIA ASPIRATION [None]
  - SOMNOLENCE [None]
  - DYSPHAGIA [None]
  - HYPERAMMONAEMIA [None]
  - ENCEPHALOPATHY [None]
